FAERS Safety Report 7372088-X (Version None)
Quarter: 2011Q1

REPORT INFORMATION
  Report Type: 
  Country: None (occurrence: None)
  Receive Date: 20110324
  Receipt Date: 20110311
  Transmission Date: 20110831
  Serious: Yes (Hospitalization)
  Sender: FDA-Public Use
  Company Number: US-CELGENEUS-163-21880-11031589

PATIENT
  Sex: Male
  Weight: 83.99 kg

DRUGS (12)
  1. REVLIMID [Suspect]
     Indication: MULTIPLE MYELOMA
     Dosage: 5 MILLIGRAM
     Route: 048
     Dates: start: 20100212
  2. ZESTRIL [Concomitant]
     Dosage: 2.5 MILLIGRAM
     Route: 048
     Dates: start: 19980101
  3. PERCOCET [Concomitant]
     Dosage: 1/2 TABLET
     Route: 048
     Dates: start: 20091001
  4. SLEEP AID [Concomitant]
     Route: 048
     Dates: start: 20100715
  5. PLAVIX [Concomitant]
     Dosage: 75 MILLIGRAM
     Route: 048
     Dates: start: 20090401
  6. ZOCOR [Concomitant]
     Dosage: 40 MILLIGRAM
     Route: 048
     Dates: start: 20080101
  7. TOPROL-XL [Concomitant]
     Dosage: 25 MILLIGRAM
     Route: 048
     Dates: start: 20080101
  8. M.V.I. [Concomitant]
     Route: 048
     Dates: start: 20090101
  9. ASPIRIN [Concomitant]
     Dosage: 325 MILLIGRAM
     Route: 048
     Dates: start: 20090401
  10. LOPRESSOR [Concomitant]
  11. BONE BUILDER [Concomitant]
     Route: 051
     Dates: start: 20090501
  12. FISH OIL [Concomitant]
     Dosage: 400 MILLIGRAM
     Route: 048
     Dates: start: 20090101

REACTIONS (1)
  - CHOLELITHIASIS [None]
